FAERS Safety Report 4389905-8 (Version None)
Quarter: 2004Q2

REPORT INFORMATION
  Report Type: 
  Country: None (occurrence: None)
  Receive Date: 20040630
  Receipt Date: 20040630
  Transmission Date: 20050107
  Serious: Yes (Hospitalization)
  Sender: FDA-Public Use
  Company Number: None

PATIENT
  Sex: Male
  Weight: 82.5547 kg

DRUGS (5)
  1. GLEEVEC [Suspect]
     Indication: PROSTATE CANCER
     Dosage: 400 MG BID ORAL
     Route: 048
     Dates: start: 20030528, end: 20030716
  2. GLEEVEC [Suspect]
     Indication: PROSTATE CANCER
     Dosage: 400 MG BID ORAL
     Route: 048
     Dates: start: 20030817, end: 20030918
  3. ZOCOR [Concomitant]
  4. VITAMIN E [Concomitant]
  5. GLUCOSAMINE [Concomitant]

REACTIONS (3)
  - LUNG INFILTRATION [None]
  - NEUTROPENIA [None]
  - WHITE BLOOD CELL COUNT DECREASED [None]
